FAERS Safety Report 24175861 (Version 1)
Quarter: 2024Q3

REPORT INFORMATION
  Report Type: Report from Study
  Country: ZA (occurrence: ZA)
  Receive Date: 20240805
  Receipt Date: 20240805
  Transmission Date: 20241017
  Serious: Yes (Other)
  Sender: ABBVIE
  Company Number: ZA-ABBOTT-2024A-1385342

PATIENT
  Age: 62 Year
  Sex: Male

DRUGS (12)
  1. FENOFIBRATE [Suspect]
     Active Substance: FENOFIBRATE
     Indication: Blood cholesterol
     Dosage: 200 MG TAKE ONE CAPSULE DAILY
     Route: 048
  2. ALLOPURINOL [Concomitant]
     Active Substance: ALLOPURINOL
     Indication: Gout
     Dosage: 300 MG TAKE ONE TABLET DAILY FOR 2 DAYS
     Route: 048
  3. ECOTRIN [Concomitant]
     Active Substance: ASPIRIN
     Indication: Blood disorder prophylaxis
     Dosage: 81 MG TAKE ONE TABLET DAILY
     Route: 048
  4. BEZAFIBRATE [Concomitant]
     Active Substance: BEZAFIBRATE
     Indication: Blood cholesterol
     Dosage: 400 MG TAKE ONE TABLET DAILY
     Route: 048
  5. ACETYLCYSTEINE [Concomitant]
     Active Substance: ACETYLCYSTEINE
     Indication: Product used for unknown indication
     Dosage: 200 MG 1- TABLET THREE TIMES AN DAY FOR TWO DAYS
     Route: 048
  6. ASPIRIN [Concomitant]
     Active Substance: ASPIRIN
     Indication: Blood disorder prophylaxis
     Dosage: 100 MG TAKE ONE TABLET DAILY
     Route: 048
  7. HUMULIN 70/30 [Concomitant]
     Active Substance: INSULIN HUMAN
     Indication: Diabetes mellitus
     Dosage: 100 IU INJECT TWICE A DAY
     Route: 058
  8. METFORMIN HYDROCHLORIDE [Concomitant]
     Active Substance: METFORMIN HYDROCHLORIDE
     Indication: Diabetes mellitus
     Dosage: 500 MG TAKE TWO TABLETS TWICE A DAY
     Route: 048
  9. Lipogen [Concomitant]
     Indication: Blood cholesterol
     Dosage: 40 MG TAKE ONE TABLET AT NIGHT
     Route: 048
  10. ANNINGZOCHIN [Concomitant]
     Indication: Hypertension
     Dosage: 50 MG TAKE ONE TABLET DAILY
     Route: 048
  11. SIMVASTATIN [Concomitant]
     Active Substance: SIMVASTATIN
     Indication: Blood cholesterol
     Dosage: 40 MG TAKE ONE TABLET AT NIGHT
     Route: 048
  12. CLOPIDOGREL BISULFATE [Concomitant]
     Active Substance: CLOPIDOGREL BISULFATE
     Indication: Blood disorder prophylaxis
     Dosage: 75 MG TAKE ONE TABLET DAILY
     Route: 048

REACTIONS (2)
  - Accident [Unknown]
  - Head injury [Unknown]
